FAERS Safety Report 13981892 (Version 1)
Quarter: 2017Q3

REPORT INFORMATION
  Report Type: Spontaneous
  Country: US (occurrence: None)
  Receive Date: 20170918
  Receipt Date: 20170918
  Transmission Date: 20171128
  Serious: Yes (Life-Threatening)
  Sender: FDA-Public Use
  Company Number: None

PATIENT
  Age: 27 Year
  Sex: Female

DRUGS (1)
  1. MISOPROSTOL. [Suspect]
     Active Substance: MISOPROSTOL
     Indication: POSTPARTUM HAEMORRHAGE
     Route: 002
     Dates: start: 20170416

REACTIONS (14)
  - Pyrexia [None]
  - Tachycardia [None]
  - Anaphylactoid syndrome of pregnancy [None]
  - Encephalopathy [None]
  - Haemoglobin decreased [None]
  - Vomiting [None]
  - Tremor [None]
  - Unresponsive to stimuli [None]
  - Seizure [None]
  - Neuroleptic malignant syndrome [None]
  - Hyperthermia malignant [None]
  - Blood pressure increased [None]
  - White blood cell count increased [None]
  - Acute respiratory failure [None]

NARRATIVE: CASE EVENT DATE: 20170416
